FAERS Safety Report 9285778 (Version 1)
Quarter: 2013Q2

REPORT INFORMATION
  Report Type: Report from Study
  Country: NL (occurrence: NL)
  Receive Date: 20130513
  Receipt Date: 20130513
  Transmission Date: 20140414
  Serious: Yes (Death, Hospitalization)
  Sender: FDA-Public Use
  Company Number: NL-PFIZER INC-2013114351

PATIENT
  Age: 84 Year
  Sex: Male
  Weight: 88.2 kg

DRUGS (21)
  1. SOMAVERT [Suspect]
     Indication: ACROMEGALY
     Dosage: 60 MG, WEEKLY
     Dates: start: 20040309
  2. MOVICOLON [Concomitant]
     Dosage: UNK
     Route: 048
     Dates: start: 20101226
  3. METFORMIN [Concomitant]
     Indication: TYPE 2 DIABETES MELLITUS
     Dosage: UNK
     Route: 048
     Dates: start: 20080115
  4. METFORMIN [Concomitant]
     Dosage: UNK
     Route: 048
     Dates: start: 20080425
  5. METFORMIN [Concomitant]
     Dosage: UNK
     Route: 048
     Dates: start: 20080718
  6. AMLODIPINE [Concomitant]
     Indication: HYPERTENSION
     Dosage: UNK
     Route: 048
     Dates: start: 20080424
  7. THYRAX [Concomitant]
     Indication: BLOOD THYROID STIMULATING HORMONE DECREASED
     Dosage: UNK
     Route: 048
     Dates: start: 20060425
  8. THYRAX [Concomitant]
     Dosage: UNK
     Route: 048
     Dates: start: 20070712
  9. SINEMET [Concomitant]
     Dosage: UNK
     Route: 048
     Dates: start: 20060425
  10. SINEMET [Concomitant]
     Dosage: UNK
     Route: 048
     Dates: start: 20070712
  11. TAMSULOSIN [Concomitant]
     Dosage: UNK
     Route: 048
     Dates: start: 20060425
  12. LISINOPRIL [Concomitant]
     Indication: HYPERTENSION
     Dosage: UNK
     Route: 048
     Dates: start: 20060425
  13. AMANTADINE [Concomitant]
     Dosage: UNK
     Route: 048
     Dates: start: 20060425
  14. FINASTERIDE [Concomitant]
     Dosage: UNK
     Route: 048
     Dates: start: 20060425
  15. HYDROCORTISONE [Concomitant]
     Indication: BLOOD CORTICOTROPHIN DECREASED
     Dosage: UNK
     Route: 048
     Dates: start: 20060425
  16. LANREOTIDE [Concomitant]
     Dosage: UNK
     Dates: start: 20040309
  17. OCTREOTIDE [Concomitant]
     Dosage: UNK
     Dates: start: 19890330
  18. OCTREOTIDE [Concomitant]
     Dosage: UNK
     Dates: start: 19980519
  19. OCTREOTIDE [Concomitant]
     Dosage: UNK
     Dates: start: 19980804
  20. OCTREOTIDE [Concomitant]
     Dosage: UNK
     Dates: end: 1998
  21. OCTREOTIDE [Concomitant]
     Dosage: UNK
     Dates: start: 2004

REACTIONS (2)
  - Anaemia [Not Recovered/Not Resolved]
  - Death [Fatal]
